FAERS Safety Report 14418703 (Version 1)
Quarter: 2018Q1

REPORT INFORMATION
  Report Type: Spontaneous
  Country: US (occurrence: US)
  Receive Date: 20180122
  Receipt Date: 20180122
  Transmission Date: 20180509
  Serious: Yes (Other)
  Sender: FDA-Public Use
  Company Number: US-TEVA-770598USA

PATIENT
  Age: 62 Year
  Sex: Male

DRUGS (1)
  1. TRAZODONE [Suspect]
     Active Substance: TRAZODONE HYDROCHLORIDE
     Indication: INSOMNIA
     Dates: start: 2017

REACTIONS (9)
  - Fall [Unknown]
  - Product use in unapproved indication [Unknown]
  - Seizure [Unknown]
  - Amnesia [Unknown]
  - Swelling [Unknown]
  - Reduced facial expression [Unknown]
  - Waist circumference decreased [Unknown]
  - Asthenia [Unknown]
  - Hunger [Unknown]
